FAERS Safety Report 17404890 (Version 1)
Quarter: 2020Q1

REPORT INFORMATION
  Report Type: Report from Study
  Country: US (occurrence: US)
  Receive Date: 20200211
  Receipt Date: 20200211
  Transmission Date: 20200409
  Serious: Yes (Death, Hospitalization, Other)
  Sender: FDA-Public Use
  Company Number: US-BAXTER-2020BAX002662

PATIENT
  Age: 82 Year
  Sex: Male
  Weight: 64.6 kg

DRUGS (4)
  1. CYCLOPHOSPHAMIDE FOR INJECTION, USP [Suspect]
     Active Substance: CYCLOPHOSPHAMIDE
     Indication: DIFFUSE LARGE B-CELL LYMPHOMA
     Dosage: 300 MG/M2; INJECTION FOR INFUSION; LDC CHEMOTHERAPY, TOTAL DOSE 520 MG
     Route: 042
     Dates: start: 20170123, end: 20170125
  2. ONDANSETRON [Concomitant]
     Active Substance: ONDANSETRON
     Indication: PRODUCT USED FOR UNKNOWN INDICATION
     Route: 065
     Dates: start: 20170123, end: 20170125
  3. FLUDARABINE [Suspect]
     Active Substance: FLUDARABINE PHOSPHATE
     Indication: DIFFUSE LARGE B-CELL LYMPHOMA
     Dosage: 30 MG/M2; INJECTION FOR INFUSION; LDC CHEMOTHERAPY, TOTAL DOSE 52.25 MG
     Route: 042
     Dates: start: 20170123, end: 20170125
  4. LOPERAMIDE [Concomitant]
     Active Substance: LOPERAMIDE
     Indication: PRODUCT USED FOR UNKNOWN INDICATION
     Route: 065
     Dates: start: 20170126, end: 20170202

REACTIONS (7)
  - Agitation [Recovered/Resolved]
  - Streptococcal bacteraemia [Recovered/Resolved]
  - Somnolence [Not Recovered/Not Resolved]
  - Agitation [Recovered/Resolved]
  - Encephalopathy [Recovered/Resolved]
  - Diffuse alveolar damage [Fatal]
  - Apnoea [Not Recovered/Not Resolved]

NARRATIVE: CASE EVENT DATE: 20170127
